FAERS Safety Report 7679763-8 (Version None)
Quarter: 2011Q3

REPORT INFORMATION
  Report Type: 
  Country: None (occurrence: None)
  Receive Date: 20110812
  Receipt Date: 20110803
  Transmission Date: 20111222
  Serious: Yes (Hospitalization)
  Sender: FDA-Public Use
  Company Number: US-JNJFOC-20110802800

PATIENT
  Sex: Male
  Weight: 47.63 kg

DRUGS (1)
  1. INVEGA SUSTENNA [Suspect]
     Indication: SCHIZOPHRENIA
     Route: 030
     Dates: start: 20110601

REACTIONS (6)
  - HYPOPNOEA [None]
  - CHEST PAIN [None]
  - HYPERHIDROSIS [None]
  - HYPERTENSION [None]
  - HYPERSENSITIVITY [None]
  - PALLOR [None]
